FAERS Safety Report 10830367 (Version 12)
Quarter: 2024Q3

REPORT INFORMATION
  Report Type: Spontaneous
  Country: FR (occurrence: FR)
  Receive Date: 20150219
  Receipt Date: 20240709
  Transmission Date: 20241016
  Serious: Yes (Death, Life-Threatening, Hospitalization, Other)
  Sender: SANOFI AVENTIS
  Company Number: FR-SA-2015SA019322

PATIENT
  Age: 46 Year
  Sex: Female
  Weight: 85 kg

DRUGS (12)
  1. AUBAGIO [Suspect]
     Active Substance: TERIFLUNOMIDE
     Indication: Multiple sclerosis relapse
     Dosage: 14 MG, QD
     Route: 048
     Dates: start: 20150113, end: 20150215
  2. AMOXICILLIN\CLAVULANIC ACID [Suspect]
     Active Substance: AMOXICILLIN\CLAVULANIC ACID
     Dosage: 2 DF
     Route: 048
     Dates: start: 20150211, end: 20150212
  3. ACETAMINOPHEN [Concomitant]
     Active Substance: ACETAMINOPHEN
     Dosage: UNK
     Route: 048
     Dates: start: 201502, end: 20150212
  4. IBUPROFEN [Concomitant]
     Active Substance: IBUPROFEN
     Dosage: UNK
  5. ECONAZOLE [Concomitant]
     Active Substance: ECONAZOLE
     Dosage: VAGINAL CAPSULE AND CREAM
  6. METHYLPREDNISOLONE [Concomitant]
     Active Substance: METHYLPREDNISOLONE
     Dosage: UNK
  7. HYDROXYZINE [Concomitant]
     Active Substance: HYDROXYZINE HYDROCHLORIDE
     Dosage: UNK
  8. CEFOTAXIME SODIUM [Concomitant]
     Active Substance: CEFOTAXIME SODIUM
     Dosage: UNK
     Dates: start: 20150213, end: 20150213
  9. METRONIDAZOLE [Concomitant]
     Active Substance: METRONIDAZOLE
     Dosage: UNK
     Dates: start: 20150213, end: 20150213
  10. LEVOFLOXACIN [Concomitant]
     Active Substance: LEVOFLOXACIN
     Dosage: UNK
     Dates: start: 20150213
  11. QUESTRAN [Concomitant]
     Active Substance: CHOLESTYRAMINE
     Dosage: UNK
  12. ESOMEPRAZOLE MAGNESIUM [Concomitant]
     Active Substance: ESOMEPRAZOLE MAGNESIUM
     Dosage: 40 MG/L

REACTIONS (31)
  - Toxic epidermal necrolysis [Fatal]
  - Pyrexia [Fatal]
  - Rash maculo-papular [Fatal]
  - Mouth ulceration [Fatal]
  - Nasal mucosal ulcer [Fatal]
  - Mucosal ulceration [Fatal]
  - Vulvovaginal inflammation [Fatal]
  - Catarrh [Fatal]
  - Odynophagia [Fatal]
  - Mucosal erosion [Fatal]
  - Erythema [Fatal]
  - Blister [Fatal]
  - Rash erythematous [Fatal]
  - Laryngeal dyspnoea [Fatal]
  - Dysphagia [Fatal]
  - Lip oedema [Fatal]
  - Skin plaque [Fatal]
  - Urticaria [Fatal]
  - Eyelid oedema [Fatal]
  - Skin lesion [Fatal]
  - Conjunctivitis [Fatal]
  - Neutropenia [Fatal]
  - Acute respiratory distress syndrome [Fatal]
  - Dyspnoea [Fatal]
  - Hypoxia [Fatal]
  - Shock [Fatal]
  - Multiple organ dysfunction syndrome [Fatal]
  - Acute kidney injury [Fatal]
  - Metabolic acidosis [Fatal]
  - Hypernatraemia [Fatal]
  - Acidosis hyperchloraemic [Fatal]

NARRATIVE: CASE EVENT DATE: 20150201
